FAERS Safety Report 7398474-X (Version None)
Quarter: 2011Q2

REPORT INFORMATION
  Report Type: 
  Country: None (occurrence: None)
  Receive Date: 20110407
  Receipt Date: 20110329
  Transmission Date: 20111010
  Serious: Yes (Hospitalization)
  Sender: FDA-Public Use
  Company Number: US-BIOGENIDEC-2011BI009656

PATIENT
  Age: 50 Year
  Sex: Female

DRUGS (3)
  1. REBIF [Concomitant]
     Indication: MULTIPLE SCLEROSIS
     Dates: start: 20070501
  2. AVONEX [Suspect]
     Route: 030
     Dates: start: 20070528
  3. AVONEX [Suspect]
     Indication: MULTIPLE SCLEROSIS
     Route: 030
     Dates: start: 19990901, end: 20070501

REACTIONS (1)
  - DYSURIA [None]
